FAERS Safety Report 15083047 (Version 2)
Quarter: 2018Q3

REPORT INFORMATION
  Report Type: Spontaneous
  Country: FR (occurrence: FR)
  Receive Date: 20180628
  Receipt Date: 20180717
  Transmission Date: 20181010
  Serious: Yes (Death, Other)
  Sender: FDA-Public Use
  Company Number: FR-MYLANLABS-2018M1045425

PATIENT
  Age: 57 Year
  Sex: Male

DRUGS (15)
  1. DEXAMETHASONE. [Concomitant]
     Active Substance: DEXAMETHASONE
     Indication: PROPHYLAXIS
     Dosage: 24 MG, SINGLE
     Route: 042
     Dates: start: 20170116, end: 20170116
  2. MORPHINUM HCL [Concomitant]
     Indication: BONE PAIN
     Dosage: 20 MG, DAILY
     Route: 042
     Dates: end: 20161211
  3. PREDNISONE. [Suspect]
     Active Substance: PREDNISONE
     Indication: PRODUCT USED FOR UNKNOWN INDICATION
     Dosage: 10 MG, DAILY
     Dates: start: 20161206, end: 20170515
  4. ONDANSETRON [Concomitant]
     Active Substance: ONDANSETRON
     Dosage: 24 MG,, SINGLE
     Route: 042
     Dates: start: 20161227, end: 20161227
  5. DEXAMETHASONE. [Concomitant]
     Active Substance: DEXAMETHASONE
     Dosage: 20 MG, SINGLE
     Route: 042
     Dates: start: 20161206, end: 20161206
  6. KETOROLAC [Concomitant]
     Active Substance: KETOROLAC\KETOROLAC TROMETHAMINE
     Indication: BONE PAIN
     Dosage: UNK
  7. MASITINIB [Suspect]
     Active Substance: MASITINIB
     Dosage: 600 MG, DAILY(5.71 MG/KG/DAY)
     Dates: start: 20170131, end: 20170512
  8. DOCETAXEL. [Suspect]
     Active Substance: DOCETAXEL
     Indication: PRODUCT USED FOR UNKNOWN INDICATION
     Dosage: 72 MG/M2, UNK
     Route: 041
     Dates: start: 20161206, end: 20170503
  9. MORPHINUM HCL [Concomitant]
     Indication: PAIN
     Dosage: 10 MG, DAILY
     Route: 042
     Dates: start: 20161211
  10. ONDANSETRON [Concomitant]
     Active Substance: ONDANSETRON
     Indication: PROPHYLAXIS
     Dosage: 24 MG, SINGLE
     Route: 042
     Dates: start: 20161206, end: 20161206
  11. ONDANSETRON [Concomitant]
     Active Substance: ONDANSETRON
     Dosage: 24 MG,, SINGLE
     Route: 042
     Dates: start: 20170116, end: 20170116
  12. DEXAMETHASONE. [Concomitant]
     Active Substance: DEXAMETHASONE
     Dosage: 20 MG, SINGLE
     Route: 042
     Dates: start: 20161227, end: 20161227
  13. MASITINIB [Suspect]
     Active Substance: MASITINIB
     Indication: PRODUCT USED FOR UNKNOWN INDICATION
     Dosage: 600 MG, DAILY(5.71 MG/KG/DAY)
     Dates: start: 20161206, end: 20161208
  14. MASITINIB [Suspect]
     Active Substance: MASITINIB
     Dosage: 600 MG, DAILY(5.71 MG/KG/DAY)
     Dates: end: 20170124
  15. KETOROLAC [Concomitant]
     Active Substance: KETOROLAC\KETOROLAC TROMETHAMINE
     Indication: PAIN
     Dosage: 1 DF, 2X/DAY
     Route: 048
     Dates: start: 20161211

REACTIONS (2)
  - Acute lymphocytic leukaemia [Unknown]
  - Second primary malignancy [Unknown]

NARRATIVE: CASE EVENT DATE: 20170516
